FAERS Safety Report 16963112 (Version 1)
Quarter: 2019Q4

REPORT INFORMATION
  Report Type: Report from Study
  Country: None (occurrence: US)
  Receive Date: 20191025
  Receipt Date: 20191025
  Transmission Date: 20200122
  Serious: Yes (Other)
  Sender: FDA-Public Use
  Company Number: US-ABBVIE-19P-163-2977368-00

PATIENT
  Age: 47 Year
  Sex: Male
  Weight: 104 kg

DRUGS (9)
  1. VENETOCLAX. [Suspect]
     Active Substance: VENETOCLAX
     Dosage: ADMINISTRATION DAYS 22-28, CYCLE 3
     Route: 048
     Dates: start: 2019
  2. VENETOCLAX. [Suspect]
     Active Substance: VENETOCLAX
     Dosage: ADMINISTRATION DAYS 1-28, CYCLE 4-5
     Route: 048
     Dates: start: 2019, end: 20191013
  3. OBINUTUZUMAB. [Concomitant]
     Active Substance: OBINUTUZUMAB
     Indication: CHRONIC LYMPHOCYTIC LEUKAEMIA
     Dosage: DAY 1 CYCLE 1
     Route: 042
     Dates: start: 20190617
  4. OBINUTUZUMAB. [Concomitant]
     Active Substance: OBINUTUZUMAB
     Dosage: DAY 8, 15 CYCLE 1 AND DAY 1 OF CYCLE 2-5
     Route: 042
     Dates: start: 2019, end: 20191007
  5. VENETOCLAX. [Suspect]
     Active Substance: VENETOCLAX
     Indication: CHRONIC LYMPHOCYTIC LEUKAEMIA
     Dosage: ADMINISTRATION DAYS 1-7 CYCLE 3
     Route: 048
     Dates: start: 2019
  6. VENETOCLAX. [Suspect]
     Active Substance: VENETOCLAX
     Dosage: ADMINISTRATION DAYS 8-14 CYCLE 3
     Route: 048
     Dates: start: 2019
  7. VENETOCLAX. [Suspect]
     Active Substance: VENETOCLAX
     Dosage: ADMINISTRATION DAYS 15-21, CYCLE 3
     Route: 048
     Dates: start: 2019
  8. IBRUTINIB [Suspect]
     Active Substance: IBRUTINIB
     Indication: CHRONIC LYMPHOCYTIC LEUKAEMIA
     Dosage: DAILY ON DAYS 1-28, CYCLES 1-5
     Route: 048
     Dates: start: 20190617, end: 20191006
  9. OBINUTUZUMAB. [Concomitant]
     Active Substance: OBINUTUZUMAB
     Dosage: DAY 2 CYCLE 1
     Route: 042
     Dates: start: 2019

REACTIONS (1)
  - Pneumonia [Not Recovered/Not Resolved]

NARRATIVE: CASE EVENT DATE: 20191011
